FAERS Safety Report 7299292-3 (Version None)
Quarter: 2011Q1

REPORT INFORMATION
  Report Type: 
  Country: None (occurrence: None)
  Receive Date: 20110217
  Receipt Date: 20110215
  Transmission Date: 20110831
  Serious: Yes (Hospitalization)
  Sender: FDA-Public Use
  Company Number: CA-AMGEN-CANCT2010010024

PATIENT
  Age: 56 Year
  Sex: Male
  Weight: 71 kg

DRUGS (8)
  1. CITALOPRAM [Concomitant]
     Dosage: 20 MG, QD
     Dates: start: 20100601
  2. HYDROMORPHONE [Concomitant]
     Dosage: UNK
     Dates: start: 20101001
  3. XYLOCAINE [Concomitant]
     Dosage: UNK
     Dates: start: 20100805, end: 20101127
  4. NYSTATIN [Concomitant]
     Dosage: 100000 ML, QID
     Dates: start: 20100722, end: 20101127
  5. FLAGYL [Concomitant]
     Dosage: 500 MG, TID
     Dates: start: 20101103, end: 20101110
  6. ATIVAN [Concomitant]
     Dosage: 1 MG, PRN
     Dates: start: 20100706, end: 20101127
  7. PANITUMUMAB [Suspect]
     Indication: OROPHARYNGEAL CANCER STAGE UNSPECIFIED
     Dosage: 557 MG, Q3WK
     Route: 042
     Dates: start: 20100706, end: 20100824
  8. ZOPLICONE [Concomitant]
     Dosage: UNK
     Dates: start: 20101023, end: 20101201

REACTIONS (1)
  - LEUKOENCEPHALOPATHY [None]
